FAERS Safety Report 10246420 (Version 1)
Quarter: 2014Q2

REPORT INFORMATION
  Report Type: Spontaneous
  Country: US (occurrence: US)
  Receive Date: 20140619
  Receipt Date: 20140619
  Transmission Date: 20141212
  Serious: No
  Sender: FDA-Public Use
  Company Number: US-PFIZER INC-2014166759

PATIENT
  Age: 66 Year
  Sex: Male
  Weight: 84 kg

DRUGS (2)
  1. GEMFIBROZIL [Suspect]
     Indication: BLOOD TRIGLYCERIDES INCREASED
     Dosage: 600 MG, UNK
     Route: 048
     Dates: start: 20121217, end: 20140611
  2. NEXIUM [Concomitant]
     Indication: GASTROOESOPHAGEAL REFLUX DISEASE
     Dosage: UNK

REACTIONS (8)
  - Feeling hot [Recovered/Resolved]
  - Fatigue [Recovered/Resolved]
  - Malaise [Recovered/Resolved]
  - Abdominal pain upper [Recovered/Resolved]
  - Abdominal pain [Recovered/Resolved]
  - Nausea [Recovered/Resolved]
  - Asthenia [Recovered/Resolved]
  - Quality of life decreased [Recovered/Resolved]
